FAERS Safety Report 6434457-1 (Version None)
Quarter: 2009Q4

REPORT INFORMATION
  Report Type: 
  Country: None (occurrence: None)
  Receive Date: 20091110
  Receipt Date: 20091029
  Transmission Date: 20100525
  Serious: Yes (Hospitalization)
  Sender: FDA-Public Use
  Company Number: FR-PFIZER INC-2009291119

PATIENT
  Age: 60 Year
  Sex: Male

DRUGS (1)
  1. PEGVISOMANT [Suspect]
     Indication: ACROMEGALY
     Dosage: UNK

REACTIONS (2)
  - ESCHERICHIA SEPSIS [None]
  - SEPTIC SHOCK [None]
